FAERS Safety Report 9269590 (Version 3)
Quarter: 2013Q3

REPORT INFORMATION
  Report Type: Spontaneous
  Country: JP (occurrence: JP)
  Receive Date: 20130503
  Receipt Date: 20130708
  Transmission Date: 20140515
  Serious: Yes (Hospitalization)
  Sender: FDA-Public Use
  Company Number: JP-NOVOPROD-376305

PATIENT
  Age: 68 Year
  Sex: Female
  Weight: 85.9 kg

DRUGS (12)
  1. VICTOZA HIKACHU INJECTION [Suspect]
     Indication: TYPE 2 DIABETES MELLITUS
     Dosage: 0.3 MG, QD
     Route: 058
     Dates: start: 20111114
  2. VICTOZA HIKACHU INJECTION [Suspect]
     Dosage: 0.9 MG, SINGLE
     Route: 058
     Dates: start: 20111214
  3. VICTOZA HIKACHU INJECTION [Suspect]
     Dosage: 0.6 MG, QD
     Route: 058
     Dates: start: 20120303
  4. VICTOZA HIKACHU INJECTION [Suspect]
     Dosage: 0.9 MG, QD
     Route: 058
     Dates: start: 20120330
  5. VICTOZA HIKACHU INJECTION [Suspect]
     Dosage: UNK
     Route: 058
     Dates: start: 2013
  6. CARVEDILOL [Suspect]
     Dosage: 10 MG, QD
     Route: 048
     Dates: start: 20060626
  7. AMARYL [Concomitant]
     Indication: TYPE 2 DIABETES MELLITUS
     Dosage: 0.5 MG, QD
     Route: 048
  8. BLOPRESS [Concomitant]
     Route: 048
  9. LIPITOR [Concomitant]
     Route: 048
  10. URALYT                             /06402701/ [Concomitant]
     Route: 048
  11. NARCARICIN [Concomitant]
     Route: 048
  12. BENIDIPINE HYDROCHLORIDE [Concomitant]
     Route: 048

REACTIONS (3)
  - Cardiac failure [Recovered/Resolved]
  - Hypoglycaemia [Recovered/Resolved]
  - Hypoglycaemia [Recovered/Resolved]
